FAERS Safety Report 16901542 (Version 4)
Quarter: 2021Q2

REPORT INFORMATION
  Report Type: Spontaneous
  Country: DE (occurrence: DE)
  Receive Date: 20191010
  Receipt Date: 20210604
  Transmission Date: 20210716
  Serious: Yes (Death, Other)
  Sender: FDA-Public Use
  Company Number: DE-009507513-1910DEU007119

PATIENT
  Age: 72 Year
  Sex: Male

DRUGS (3)
  1. PEMBROLIZUMAB. [Suspect]
     Active Substance: PEMBROLIZUMAB
     Indication: LUNG CARCINOMA CELL TYPE UNSPECIFIED STAGE IV
     Dosage: UNK
  2. DOCETAXEL. [Suspect]
     Active Substance: DOCETAXEL
     Indication: NON-SMALL CELL LUNG CANCER
     Dosage: 200 MILLIGRAM (5 CYCLES)
     Dates: start: 20170602, end: 20170918
  3. NINTEDANIB [Suspect]
     Active Substance: NINTEDANIB
     Indication: NON-SMALL CELL LUNG CANCER
     Dosage: 200 MILLIGRAM (5 CYCLES)
     Dates: start: 20170602, end: 20170918

REACTIONS (7)
  - Malignant neoplasm progression [Unknown]
  - Adverse event [Unknown]
  - Nausea [Unknown]
  - Poisoning [Unknown]
  - Vomiting [Unknown]
  - Polyneuropathy [Unknown]
  - Death [Fatal]

NARRATIVE: CASE EVENT DATE: 2017
